FAERS Safety Report 24041192 (Version 1)
Quarter: 2024Q3

REPORT INFORMATION
  Report Type: Spontaneous
  Country: GB (occurrence: GB)
  Receive Date: 20240702
  Receipt Date: 20240702
  Transmission Date: 20241017
  Serious: Yes (Hospitalization, Other)
  Sender: TEVA
  Company Number: None

PATIENT
  Age: 80 Year
  Sex: Female

DRUGS (34)
  1. ALENDRONIC ACID [Suspect]
     Active Substance: ALENDRONIC ACID
     Dosage: ONE TO BE TAKEN ON THE SAME DAY EACH WEEK. SHOULD BE SWALLOWED WHOLE WITH PLENTY OF WATER WHILE S...
     Route: 065
  2. THEOPHYLLINE ANHYDROUS [Concomitant]
     Active Substance: THEOPHYLLINE ANHYDROUS
  3. IPRATROPIUM BROMIDE [Concomitant]
     Active Substance: IPRATROPIUM BROMIDE\IPRATROPIUM BROMIDE ANHYDROUS
     Indication: Dyspnoea
     Dosage: TIME INTERVAL: 4 AS NECESSARY: 500 MICROGRAMS / 2 ML NEBULISER LIQUID UNIT DOSE VIALS ONE TO BE U...
  4. AZITHROMYCIN [Concomitant]
     Active Substance: AZITHROMYCIN
     Dosage: N ON A MONDAY, WEDNESDAY AND FRIDAY
  5. LACTULOSE [Concomitant]
     Active Substance: LACTULOSE
  6. BECLOMETHASONE DIPROPIONATE\FORMOTEROL FUMARATE\GLYCOPYRROLATE [Concomitant]
     Active Substance: BECLOMETHASONE DIPROPIONATE\FORMOTEROL FUMARATE\GLYCOPYRROLATE
     Dosage: 87 / 5 / 9 MICROGRAMS / DOSE INHALER PUFFS
  7. CLOBETASONE [Concomitant]
     Active Substance: CLOBETASONE
  8. Evacal-D3 [Concomitant]
     Dosage: 1500 MG / 400 UNIT
  9. IVABRADINE [Concomitant]
     Active Substance: IVABRADINE
     Dosage: TAKE ONE IN THE MORNING AND TAKE ONE AT NIGHT
  10. MIRTAZAPINE [Concomitant]
     Active Substance: MIRTAZAPINE
     Dosage: AT NIGHT
  11. IBUPROFEN [Concomitant]
     Active Substance: IBUPROFEN
  12. GABAPENTIN [Concomitant]
     Active Substance: GABAPENTIN
  13. ACETYLCYSTEINE [Concomitant]
     Active Substance: ACETYLCYSTEINE
     Dosage: SUGAR FREE
  14. CLOBETASONE [Concomitant]
     Active Substance: CLOBETASONE
     Dosage: 0.05% LEGS AND ARMS EVERY OTHER DAY
  15. LACTULOSE [Concomitant]
     Active Substance: LACTULOSE
     Dosage: 3.1-3.7 G / 5 ML ORAL SOLUTION
  16. IPRATROPIUM [Concomitant]
     Active Substance: IPRATROPIUM
  17. DOCUSATE [Concomitant]
     Active Substance: DOCUSATE
  18. SENNA [Concomitant]
     Active Substance: SENNA LEAF\SENNOSIDES\SENNOSIDES A AND B
     Dosage: AT NIGHT
  19. ALBUTEROL [Concomitant]
     Active Substance: ALBUTEROL
     Indication: Dyspnoea
     Dosage: TIME INTERVAL: 4 AS NECESSARY: 100 MICROGRAMS / DOSE INHALER CFC FREE PUFFS
  20. NITROGLYCERIN [Concomitant]
     Active Substance: NITROGLYCERIN
     Dosage: 400 MICROGRAMS / DOSE PUMPP SUBLINGUAL SPRAY SPRAY ONE OR TWO DOSES UNDER TONGUE WHEN ANGINA OCCU...
     Route: 060
  21. FUROSEMIDE [Concomitant]
     Active Substance: FUROSEMIDE
     Dosage: EACH MORNING
  22. LANSOPRAZOLE [Concomitant]
     Active Substance: LANSOPRAZOLE
     Dosage: EACH MORNING
  23. RHAMNUS PURSHIANA BARK EXTRACT [Concomitant]
     Active Substance: RHAMNUS PURSHIANA BARK EXTRACT
  24. NITROGLYCERIN [Concomitant]
     Active Substance: NITROGLYCERIN
     Dosage: 5 MG / 24 HOURS
  25. SENNA [Concomitant]
     Active Substance: SENNA LEAF\SENNOSIDES\SENNOSIDES A AND B
  26. ALBUTEROL [Concomitant]
     Active Substance: ALBUTEROL
     Dosage: TIME INTERVAL: 4 AS NECESSARY: 2.5 MG / 2.5 ML UNIT DOSE VIALS
  27. ATORVASTATIN [Concomitant]
     Active Substance: ATORVASTATIN
  28. BISOPROLOL [Concomitant]
     Active Substance: BISOPROLOL\BISOPROLOL FUMARATE
  29. ALBUTEROL [Concomitant]
     Active Substance: ALBUTEROL
  30. MIRABEGRON [Concomitant]
     Active Substance: MIRABEGRON
  31. SODIUM CHLORIDE [Concomitant]
     Active Substance: SODIUM CHLORIDE
     Indication: Dyspnoea
     Dosage: TIME INTERVAL: 4 AS NECESSARY: 0.9% NEBULISER LIQUID 2.5 ML UNIT DOSE AMPOULES 2 X 2.5 ML
  32. ACETAMINOPHEN [Concomitant]
     Active Substance: ACETAMINOPHEN
     Dosage: ONE OR TWO TO BE TAKEN EVERY 4 TO 6 HOURS WHEN NECESSARY.
  33. IBUPROFEN [Concomitant]
     Active Substance: IBUPROFEN
     Dosage: 10% APPLY UP TO THREE TIMES A DAY - USES FOR ANKLES PRN
  34. APIXABAN [Concomitant]
     Active Substance: APIXABAN

REACTIONS (3)
  - Burn oral cavity [Unknown]
  - Burn oesophageal [Recovered/Resolved]
  - Ageusia [Recovered/Resolved]
